FAERS Safety Report 17846227 (Version 1)
Quarter: 2020Q2

REPORT INFORMATION
  Report Type: Spontaneous
  Country: CA (occurrence: CA)
  Receive Date: 20200601
  Receipt Date: 20200601
  Transmission Date: 20200714
  Serious: Yes (Hospitalization)
  Sender: FDA-Public Use
  Company Number: CA-TEVA-2020-CA-1241963

PATIENT
  Age: 36 Year
  Sex: Female

DRUGS (24)
  1. PEGINTERFERON ALFA- 2B [Interacting]
     Active Substance: PEGINTERFERON ALFA-2B
     Indication: PRODUCT USED FOR UNKNOWN INDICATION
     Dosage: 400 MILLIGRAM DAILY;
     Route: 065
  2. INTRON A [Interacting]
     Active Substance: INTERFERON ALFA-2B
     Route: 065
  3. PEGASYS [Interacting]
     Active Substance: PEGINTERFERON ALFA-2A
     Indication: PRODUCT USED FOR UNKNOWN INDICATION
     Route: 065
  4. PEGASYS [Interacting]
     Active Substance: PEGINTERFERON ALFA-2A
     Dosage: SOLUTION SUBCUTANEOUS
     Route: 058
  5. PROGRAF [Interacting]
     Active Substance: TACROLIMUS
     Route: 065
  6. RIBAVIRIN. [Interacting]
     Active Substance: RIBAVIRIN
     Indication: PRODUCT USED FOR UNKNOWN INDICATION
     Dosage: 400 MILLIGRAM DAILY;
     Route: 065
  7. PEGINTERFERON ALFA- 2B [Interacting]
     Active Substance: PEGINTERFERON ALFA-2B
     Indication: HEPATITIS C
     Route: 065
  8. PROGRAF [Interacting]
     Active Substance: TACROLIMUS
     Indication: PRODUCT USED FOR UNKNOWN INDICATION
     Dosage: 1 MILLIGRAM DAILY;
     Route: 065
  9. VICTRELIS TRIPLEB OCEPREVIR CAPSULE 200 MG, RIBAVIRIN [Interacting]
     Active Substance: BOCEPREVIR\PEGINTERFERON ALFA-2B\RIBAVIRIN
     Indication: PRODUCT USED FOR UNKNOWN INDICATION
     Route: 065
  10. WARFARIN [Concomitant]
     Active Substance: WARFARIN
     Indication: SHUNT THROMBOSIS
     Route: 065
  11. MYCOPHENOLATE MOFETIL. [Interacting]
     Active Substance: MYCOPHENOLATE MOFETIL
     Indication: IMMUNOSUPPRESSION
     Route: 065
  12. BOCEPREVIR [Interacting]
     Active Substance: BOCEPREVIR
     Indication: HEPATITIS C
     Dosage: 2400 MILLIGRAM DAILY;
     Route: 065
  13. RIBAVIRIN. [Interacting]
     Active Substance: RIBAVIRIN
     Indication: HEPATITIS C
     Route: 065
  14. INTRON A [Interacting]
     Active Substance: INTERFERON ALFA-2B
     Indication: HEPATITIS C
     Dosage: 800 MILLIGRAM DAILY;
     Route: 065
  15. PEGINTERFERON ALFA- 2B [Interacting]
     Active Substance: PEGINTERFERON ALFA-2B
     Dosage: 800 MILLIGRAM DAILY;
     Route: 065
  16. RIBAVIRIN. [Interacting]
     Active Substance: RIBAVIRIN
     Dosage: 800 MILLIGRAM DAILY;
     Route: 065
  17. MYCOPHENOLATE MOFETIL. [Suspect]
     Active Substance: MYCOPHENOLATE MOFETIL
     Indication: LIVER TRANSPLANT
     Route: 065
  18. BOCEPREVIR [Interacting]
     Active Substance: BOCEPREVIR
     Indication: HEPATITIS CHOLESTATIC
     Route: 065
  19. INTRON A [Interacting]
     Active Substance: INTERFERON ALFA-2B
     Indication: PRODUCT USED FOR UNKNOWN INDICATION
     Route: 065
  20. PEGASYS [Interacting]
     Active Substance: PEGINTERFERON ALFA-2A
     Route: 065
  21. PEGINTERFERON ALFA- 2B [Interacting]
     Active Substance: PEGINTERFERON ALFA-2B
     Dosage: 400 MILLIGRAM DAILY;
     Route: 065
  22. RIBAVIRIN. [Interacting]
     Active Substance: RIBAVIRIN
     Indication: CHRONIC HEPATITIS C
     Route: 065
  23. INTRON A [Interacting]
     Active Substance: INTERFERON ALFA-2B
     Dosage: 400 MILLIGRAM DAILY;
     Route: 065
  24. PROGRAF [Interacting]
     Active Substance: TACROLIMUS
     Route: 065

REACTIONS (13)
  - Anaemia [Unknown]
  - Ascites [Unknown]
  - Hepatic enzyme increased [Unknown]
  - Hepatitis cholestatic [Unknown]
  - Drug interaction [Unknown]
  - Hepatitis C [Unknown]
  - Neutropenia [Unknown]
  - Liver transplant [Unknown]
  - Hepatic function abnormal [Unknown]
  - Renal impairment [Unknown]
  - Drug ineffective [Unknown]
  - Drug level increased [Unknown]
  - Jaundice [Unknown]
